FAERS Safety Report 14395291 (Version 1)
Quarter: 2018Q1

REPORT INFORMATION
  Report Type: Spontaneous
  Country: US (occurrence: US)
  Receive Date: 20180116
  Receipt Date: 20180116
  Transmission Date: 20180509
  Serious: No
  Sender: FDA-Public Use
  Company Number: US-ALLERGAN-1700425US

PATIENT
  Sex: Female

DRUGS (8)
  1. BOTOX COSMETIC [Suspect]
     Active Substance: ONABOTULINUMTOXINA
     Indication: SKIN WRINKLING
     Dosage: 5 UNITS, SINGLE
     Route: 030
     Dates: start: 20161216, end: 20161216
  2. BOTOX COSMETIC [Suspect]
     Active Substance: ONABOTULINUMTOXINA
     Indication: SKIN WRINKLING
     Dosage: 5 UNITS, SINGLE
     Route: 030
     Dates: start: 20161216, end: 20161216
  3. BOTOX COSMETIC [Suspect]
     Active Substance: ONABOTULINUMTOXINA
     Dosage: 5 UNITS, SINGLE
     Route: 030
     Dates: start: 20161216, end: 20161216
  4. CLARITIN [Concomitant]
     Active Substance: LORATADINE
     Indication: PRODUCT USED FOR UNKNOWN INDICATION
     Dosage: UNK
     Route: 065
  5. BOTOX COSMETIC [Suspect]
     Active Substance: ONABOTULINUMTOXINA
     Dosage: 10 UNITS, SINGLE
     Route: 030
     Dates: start: 20161216, end: 20161216
  6. BOTOX COSMETIC [Suspect]
     Active Substance: ONABOTULINUMTOXINA
     Dosage: 2.5 UNITS, SINGLE
     Route: 030
     Dates: start: 20161216, end: 20161216
  7. BOTOX COSMETIC [Suspect]
     Active Substance: ONABOTULINUMTOXINA
     Dosage: 2.5 UNITS, SINGLE
     Route: 030
     Dates: start: 20161216, end: 20161216
  8. BOTOX COSMETIC [Suspect]
     Active Substance: ONABOTULINUMTOXINA
     Dosage: UNK UNK, SINGLE
     Route: 030

REACTIONS (1)
  - Drug ineffective [Unknown]
